FAERS Safety Report 25943941 (Version 3)
Quarter: 2025Q4

REPORT INFORMATION
  Report Type: Report from Study
  Country: US (occurrence: US)
  Receive Date: 20251021
  Receipt Date: 20251215
  Transmission Date: 20260118
  Serious: No
  Sender: BIOVITRUM
  Company Number: US-BIOVITRUM-2025-US-014238

PATIENT
  Age: 57 Year
  Sex: Female

DRUGS (1)
  1. KINERET [Suspect]
     Active Substance: ANAKINRA
     Indication: Product used for unknown indication
     Dosage: ONCE DAILY?100MG/0.67ML

REACTIONS (5)
  - Skin infection [Unknown]
  - Discontinued product administered [Unknown]
  - Rash [Unknown]
  - Intentional product misuse [Unknown]
  - Drug ineffective [Unknown]
